FAERS Safety Report 4928634-6 (Version None)
Quarter: 2006Q1

REPORT INFORMATION
  Report Type: 
  Country: None (occurrence: None)
  Receive Date: 20060227
  Receipt Date: 20060227
  Transmission Date: 20060701
  Serious: Yes (Life-Threatening, Hospitalization)
  Sender: FDA-Public Use
  Company Number: None

PATIENT
  Age: 67 Year
  Sex: Male

DRUGS (1)
  1. NPH INSULIN [Suspect]
     Indication: HYPERGLYCAEMIA
     Dosage: 85U   QAM AND QPM   SQ
     Route: 058
     Dates: start: 20050505, end: 20050529

REACTIONS (4)
  - CONFUSIONAL STATE [None]
  - HYPERHIDROSIS [None]
  - HYPOGLYCAEMIA [None]
  - TREATMENT NONCOMPLIANCE [None]
